FAERS Safety Report 24192393 (Version 1)
Quarter: 2024Q3

REPORT INFORMATION
  Report Type: Spontaneous
  Country: CO (occurrence: CO)
  Receive Date: 20240809
  Receipt Date: 20240809
  Transmission Date: 20241017
  Serious: Yes (Other)
  Sender: ABBVIE
  Company Number: CO-MLMSERVICE-20240730-PI147882-00394-1

PATIENT
  Age: 61 Year
  Sex: Female

DRUGS (1)
  1. BOTULINUM TOXIN NOS [Suspect]
     Active Substance: BOTULINUM TOXIN NOS
     Indication: Product used for unknown indication
     Dosage: TIME INTERVAL: AS NECESSARY
     Route: 065
     Dates: start: 2023, end: 2023

REACTIONS (2)
  - Infective myositis [Recovered/Resolved]
  - Panniculitis [Recovered/Resolved]

NARRATIVE: CASE EVENT DATE: 20230101
